FAERS Safety Report 12745014 (Version 1)
Quarter: 2016Q3

REPORT INFORMATION
  Report Type: Report from Study
  Country: FR (occurrence: FR)
  Receive Date: 20160915
  Receipt Date: 20160915
  Transmission Date: 20161109
  Serious: Yes (Hospitalization, Other)
  Sender: FDA-Public Use
  Company Number: FR-AMGEN-FRASP2016109774

PATIENT
  Age: 64 Year
  Sex: Female

DRUGS (11)
  1. TRAMADOL. [Concomitant]
     Active Substance: TRAMADOL
     Dosage: UNK
     Dates: end: 2016
  2. DARATUMUMAB [Concomitant]
     Active Substance: DARATUMUMAB
     Dosage: UNK
     Dates: start: 20160818
  3. PENTACARINAT [Concomitant]
     Active Substance: PENTAMIDINE ISETHIONATE
     Dosage: UNK
  4. ZELITREX [Concomitant]
     Active Substance: VALACYCLOVIR HYDROCHLORIDE
     Dosage: 500 MG, QD, IN THE MORNING
     Dates: end: 201608
  5. CALCIDOSE [Concomitant]
     Active Substance: CALCIUM CARBONATE
     Dosage: 500 UNK, TID, ONE SACHET MORNING, NOON AND EVENING
  6. KARDEGIC [Concomitant]
     Active Substance: ASPIRIN LYSINE
     Dosage: 75 MG, QD, ONE SACHET AT NOON
  7. DEXAMETHASONE. [Concomitant]
     Active Substance: DEXAMETHASONE
     Dosage: 20 UNK, UNK
  8. BACTRIM [Concomitant]
     Active Substance: SULFAMETHOXAZOLE\TRIMETHOPRIM
     Dosage: 500 MG, MONDAY, WEDNESDAY AND FRIDAY
     Dates: end: 201608
  9. CARDENSIEL [Concomitant]
     Active Substance: BISOPROLOL FUMARATE
     Dosage: 3.75 MG, QD
  10. LEVOTHYROX [Concomitant]
     Active Substance: LEVOTHYROXINE
     Dosage: 75 MUG, QD, IN THE MORNING
  11. CARFILZOMIB [Suspect]
     Active Substance: CARFILZOMIB
     Indication: PLASMA CELL MYELOMA
     Dosage: UNK
     Route: 065
     Dates: start: 20160726, end: 201608

REACTIONS (6)
  - Cardiac failure [Recovering/Resolving]
  - Acute pulmonary oedema [Unknown]
  - Acute kidney injury [Unknown]
  - Anaemia [Unknown]
  - Cardiogenic shock [Unknown]
  - Multiple organ dysfunction syndrome [Unknown]

NARRATIVE: CASE EVENT DATE: 201607
